FAERS Safety Report 9060887 (Version 1)
Quarter: 2013Q1

REPORT INFORMATION
  Report Type: Spontaneous
  Country: BR (occurrence: BR)
  Receive Date: 20130204
  Receipt Date: 20130204
  Transmission Date: 20140127
  Serious: Yes (Death, Hospitalization)
  Sender: FDA-Public Use
  Company Number: BR-ASTRAZENECA-2013SE06991

PATIENT
  Age: 88 Year
  Sex: Male

DRUGS (5)
  1. SYMBICORT TURBUHALER [Suspect]
     Route: 055
  2. ATACAND [Suspect]
     Route: 048
  3. NEXIUM [Suspect]
     Route: 048
  4. CRESTOR [Suspect]
     Route: 048
  5. TAKING MEDICATION TO TREAT A BLOOD PRESSURE DISORDER [Concomitant]
     Indication: BLOOD PRESSURE ABNORMAL

REACTIONS (2)
  - Femur fracture [Unknown]
  - Post procedural complication [Fatal]
